FAERS Safety Report 9569614 (Version 2)
Quarter: 2014Q1

REPORT INFORMATION
  Report Type: Spontaneous
  Country: US (occurrence: US)
  Receive Date: 20130930
  Receipt Date: 20140225
  Transmission Date: 20141002
  Serious: No
  Sender: FDA-Public Use
  Company Number: US-AMGEN-USASP2013066508

PATIENT
  Age: 56 Year
  Sex: Male
  Weight: 81.63 kg

DRUGS (5)
  1. ENBREL [Suspect]
     Indication: PRODUCT USED FOR UNKNOWN INDICATION
     Dosage: 50 MG, QWK
     Route: 058
  2. MULTIVITAMINS, PLAIN [Concomitant]
     Dosage: UNK
  3. ALEVE [Concomitant]
     Dosage: 220 MG, UNK
  4. LUNESTA [Concomitant]
     Dosage: 1 MG, UNK
  5. LORTAB                             /00607101/ [Concomitant]
     Dosage: UNK (5 TAB)

REACTIONS (6)
  - Fatigue [Unknown]
  - Nausea [Unknown]
  - Abdominal discomfort [Unknown]
  - Diarrhoea [Unknown]
  - Psoriasis [Unknown]
  - Injection site pain [Unknown]
